FAERS Safety Report 6981662-1 (Version None)
Quarter: 2010Q3

REPORT INFORMATION
  Report Type: 
  Country: None (occurrence: None)
  Receive Date: 20100914
  Receipt Date: 20090930
  Transmission Date: 20110219
  Serious: Yes (Other)
  Sender: FDA-Public Use
  Company Number: US-PFIZER INC-2009251693

PATIENT
  Age: 72 Year
  Sex: Male
  Weight: 82.54 kg

DRUGS (2)
  1. LYRICA [Suspect]
     Indication: SCIATICA
     Dosage: 50 MG, 3X/DAY
     Route: 048
     Dates: start: 20090727, end: 20090802
  2. LYRICA [Suspect]
     Indication: BACK PAIN

REACTIONS (10)
  - CONFUSIONAL STATE [None]
  - DYSARTHRIA [None]
  - FALL [None]
  - GAIT DISTURBANCE [None]
  - HALLUCINATION, VISUAL [None]
  - MUSCLE SPASMS [None]
  - NIGHTMARE [None]
  - SLEEP TALKING [None]
  - SOMNOLENCE [None]
  - VISION BLURRED [None]
